FAERS Safety Report 9494510 (Version 2)
Quarter: 2013Q3

REPORT INFORMATION
  Report Type: Spontaneous
  Country: FR (occurrence: None)
  Receive Date: 20130828
  Receipt Date: 20130911
  Transmission Date: 20140515
  Serious: Yes (Hospitalization)
  Sender: FDA-Public Use
  Company Number: ACET20130023

PATIENT
  Age: 15 Year
  Sex: Female

DRUGS (4)
  1. Q-PAP EXTRA STRENGTH [Suspect]
     Indication: INTENTIONAL OVERDOSE
     Route: 048
  2. IBUPROFEN [Suspect]
     Indication: INTENTIONAL OVERDOSE
     Route: 048
  3. NAPROXEN [Suspect]
     Indication: INTENTIONAL OVERDOSE
     Route: 048
  4. PSEUDOEPHEDRINE (PSEUDOEPHEDRINE) (UNKNOWN) (PSEUDOEPHEDRINE) [Concomitant]

REACTIONS (2)
  - Intentional overdose [None]
  - Renal failure acute [None]
